FAERS Safety Report 8576718-6 (Version None)
Quarter: 2012Q3

REPORT INFORMATION
  Report Type: 
  Country: None (occurrence: None)
  Receive Date: 20120807
  Receipt Date: 20120727
  Transmission Date: 20120928
  Serious: Yes (Hospitalization)
  Sender: FDA-Public Use
  Company Number: FR-GLAXOSMITHKLINE-B0818579A

PATIENT
  Sex: Female
  Weight: 70 kg

DRUGS (7)
  1. LERCANIDIPINE [Suspect]
     Indication: HYPERTENSION
     Dosage: 1UNIT PER DAY
     Route: 048
     Dates: end: 20120617
  2. TRANDOLAPRIL [Concomitant]
     Route: 065
  3. ARIXTRA [Suspect]
     Indication: THROMBOPHLEBITIS
     Dosage: 7.5MG UNKNOWN
     Route: 058
     Dates: start: 20120607, end: 20120613
  4. COLCHICINE [Suspect]
     Indication: HYPERURICAEMIA
     Route: 048
     Dates: end: 20120613
  5. ATORVASTATIN [Concomitant]
     Route: 065
  6. FUROSEMIDE [Concomitant]
     Route: 065
  7. BISOPROLOL FUMARATE [Concomitant]
     Route: 065

REACTIONS (6)
  - MUSCULAR WEAKNESS [None]
  - RENAL FAILURE [None]
  - ANAEMIA [None]
  - MUSCLE HAEMORRHAGE [None]
  - ESCHERICHIA URINARY TRACT INFECTION [None]
  - PAIN IN EXTREMITY [None]
